FAERS Safety Report 18022128 (Version 7)
Quarter: 2022Q3

REPORT INFORMATION
  Report Type: Spontaneous
  Country: CO (occurrence: CO)
  Receive Date: 20200714
  Receipt Date: 20220705
  Transmission Date: 20221027
  Serious: Yes (Other)
  Sender: FDA-Public Use
  Company Number: CO-PFIZER INC-2020073366

PATIENT
  Age: 68 Year
  Sex: Female

DRUGS (6)
  1. PALBOCICLIB [Suspect]
     Active Substance: PALBOCICLIB
     Indication: Breast cancer metastatic
     Dosage: 125 MG, CYCLIC (21 DAYS AND RESTS 7 DAYS)
     Route: 048
     Dates: start: 20180513
  2. PALBOCICLIB [Suspect]
     Active Substance: PALBOCICLIB
     Dosage: 125 MG, CYCLIC (21 DAYS ON, 7 DAYS OFF)
     Route: 048
     Dates: start: 20191226
  3. PALBOCICLIB [Suspect]
     Active Substance: PALBOCICLIB
     Dosage: 125 MG
     Route: 048
  4. PALBOCICLIB [Suspect]
     Active Substance: PALBOCICLIB
     Dosage: 125 MG, UNSPECIFIED FREQUENCY
     Route: 048
     Dates: start: 201905
  5. PALBOCICLIB [Suspect]
     Active Substance: PALBOCICLIB
     Dosage: 100 MG, UNSPECIFIED FREQUENCY
     Route: 048
  6. FULVESTRANT [Concomitant]
     Active Substance: FULVESTRANT
     Dosage: ONE INJECTION ON EACH BUTTOCK EACH MONTH

REACTIONS (27)
  - Hallucination [Unknown]
  - Cirrhosis alcoholic [Unknown]
  - Arthralgia [Not Recovered/Not Resolved]
  - Pain in extremity [Not Recovered/Not Resolved]
  - Insomnia [Unknown]
  - Fatigue [Not Recovered/Not Resolved]
  - Nail disorder [Unknown]
  - Vertigo [Unknown]
  - Mobility decreased [Not Recovered/Not Resolved]
  - Spinal pain [Not Recovered/Not Resolved]
  - Coccydynia [Not Recovered/Not Resolved]
  - Musculoskeletal pain [Not Recovered/Not Resolved]
  - Bone pain [Not Recovered/Not Resolved]
  - Hypersensitivity [Recovering/Resolving]
  - Hordeolum [Not Recovered/Not Resolved]
  - Myalgia [Recovered/Resolved]
  - Dry skin [Recovering/Resolving]
  - Rash [Not Recovered/Not Resolved]
  - Decreased immune responsiveness [Not Recovered/Not Resolved]
  - Anaemia [Unknown]
  - Herpes zoster [Recovered/Resolved]
  - Food refusal [Unknown]
  - Malaise [Unknown]
  - Hyperchlorhydria [Unknown]
  - Memory impairment [Unknown]
  - Skin abrasion [Unknown]
  - Dyspepsia [Not Recovered/Not Resolved]

NARRATIVE: CASE EVENT DATE: 20191226
